FAERS Safety Report 10065763 (Version 1)
Quarter: 2014Q2

REPORT INFORMATION
  Report Type: Spontaneous
  Country: US (occurrence: US)
  Receive Date: 20140408
  Receipt Date: 20140408
  Transmission Date: 20141212
  Serious: No
  Sender: FDA-Public Use
  Company Number: US-ASTELLAS-2014US002194

PATIENT
  Sex: Male

DRUGS (4)
  1. MYRBETRIQ [Suspect]
     Indication: PRODUCT USED FOR UNKNOWN INDICATION
     Dosage: 50 MG, UID/QD
     Route: 048
     Dates: start: 201402
  2. LOVASTATIN [Concomitant]
     Indication: HYPERTENSION
     Dosage: ONE TABLET DAILY
     Route: 048
  3. ALLOPURINOL [Concomitant]
     Indication: PROSTATOMEGALY
     Dosage: ONE TABLET DAILY
     Route: 048
  4. TAMSULOSIN [Concomitant]
     Indication: PROSTATOMEGALY
     Dosage: ONE TABLET DAILY
     Route: 048

REACTIONS (2)
  - Intentional product misuse [Unknown]
  - Drug ineffective [Unknown]
